FAERS Safety Report 8919202 (Version 1)
Quarter: 2012Q4

REPORT INFORMATION
  Report Type: Report from Study
  Country: GB (occurrence: GB)
  Receive Date: 20121121
  Receipt Date: 20121121
  Transmission Date: 20130627
  Serious: Yes (Other)
  Sender: FDA-Public Use
  Company Number: GB-ASTELLAS-2012EU009913

PATIENT

DRUGS (2)
  1. TACROLIMUS SYSTEMIC [Suspect]
     Indication: MATERNAL EXPOSURE DURING PREGNANCY
     Dosage: UNK
     Route: 064
  2. PREDNISONE [Concomitant]
     Dosage: UNK
     Route: 065

REACTIONS (1)
  - Premature baby [Unknown]
